FAERS Safety Report 4616670-9 (Version None)
Quarter: 2005Q1

REPORT INFORMATION
  Report Type: 
  Country: None (occurrence: None)
  Receive Date: 20050321
  Receipt Date: 20050307
  Transmission Date: 20050727
  Serious: Yes (Hospitalization)
  Sender: FDA-Public Use
  Company Number: 2005032983

PATIENT
  Age: 50 Year
  Sex: Female
  Weight: 97 kg

DRUGS (2)
  1. ZELDOX (IM) (ZIPRASIDONE) [Suspect]
     Indication: DEPRESSION
     Dosage: 120 MG (40 MG, 3 IN 1 D), INTRAMUSCULAR
     Route: 030
     Dates: start: 20040528, end: 20040529
  2. ZELDOX (IM) (ZIPRASIDONE) [Suspect]
     Indication: PSYCHOTIC DISORDER
     Dosage: 120 MG (40 MG, 3 IN 1 D), INTRAMUSCULAR
     Route: 030
     Dates: start: 20040528, end: 20040529

REACTIONS (5)
  - DIZZINESS [None]
  - FALL [None]
  - FIBULA FRACTURE [None]
  - NAUSEA [None]
  - ORTHOSTATIC HYPOTENSION [None]
